FAERS Safety Report 4587759-8 (Version None)
Quarter: 2005Q1

REPORT INFORMATION
  Report Type: 
  Country: None (occurrence: None)
  Receive Date: 20050218
  Receipt Date: 20050125
  Transmission Date: 20050727
  Serious: Yes (Hospitalization, Other)
  Sender: FDA-Public Use
  Company Number: US-AMGEN-US102412

PATIENT
  Sex: Male
  Weight: 31 kg

DRUGS (7)
  1. EPOGEN [Suspect]
     Indication: RENAL FAILURE CHRONIC
     Route: 058
     Dates: start: 20001101
  2. ARANESP [Suspect]
     Indication: RENAL FAILURE CHRONIC
     Route: 058
     Dates: start: 20040819, end: 20041011
  3. NORVASC [Concomitant]
     Route: 048
     Dates: start: 19980501
  4. PREDNISONE [Concomitant]
     Route: 048
     Dates: start: 19980501
  5. TACROLIMUS [Concomitant]
  6. CELLCEPT [Concomitant]
     Dates: start: 19980501
  7. NUTROPIN [Concomitant]
     Dates: start: 20040908

REACTIONS (9)
  - ABDOMINAL PAIN [None]
  - ASCITES [None]
  - HAEMOGLOBIN DECREASED [None]
  - INFLAMMATION [None]
  - INTESTINAL OBSTRUCTION [None]
  - PERITONEAL ADHESIONS [None]
  - RETICULOCYTOPENIA [None]
  - THERAPEUTIC RESPONSE DECREASED [None]
  - WHITE BLOOD CELL COUNT INCREASED [None]
